FAERS Safety Report 16832958 (Version 1)
Quarter: 2019Q3

REPORT INFORMATION
  Report Type: Spontaneous
  Country: AU (occurrence: AU)
  Receive Date: 20190920
  Receipt Date: 20190920
  Transmission Date: 20191005
  Serious: Yes (Death, Other)
  Sender: FDA-Public Use
  Company Number: AU-009507513-1909AUS004436

PATIENT
  Age: 16 Year
  Sex: Female
  Weight: 62 kg

DRUGS (4)
  1. TEMOZOLOMIDE. [Suspect]
     Active Substance: TEMOZOLOMIDE
     Indication: ASTROCYTOMA MALIGNANT
     Dosage: 100MG TDS ORALLY
     Route: 048
  2. DEXAMETHASONE. [Concomitant]
     Active Substance: DEXAMETHASONE
     Indication: PREMEDICATION
  3. TEMOZOLOMIDE. [Suspect]
     Active Substance: TEMOZOLOMIDE
     Indication: ASTROCYTOMA MALIGNANT
     Dosage: FIVE DAYS A WEEK
     Route: 042
  4. METOCLOPRAMIDE. [Concomitant]
     Active Substance: METOCLOPRAMIDE
     Indication: PREMEDICATION

REACTIONS (2)
  - Therapeutic product effect incomplete [Unknown]
  - Malignant neoplasm progression [Fatal]
